FAERS Safety Report 5386953-6 (Version None)
Quarter: 2007Q3

REPORT INFORMATION
  Report Type: 
  Country: None (occurrence: None)
  Receive Date: 20070713
  Receipt Date: 20070702
  Transmission Date: 20080115
  Serious: Yes (Other)
  Sender: FDA-Public Use
  Company Number: FR-PFIZER INC-2007055065

PATIENT
  Sex: Female

DRUGS (2)
  1. LYRICA [Suspect]
  2. TAZOCILLINE [Concomitant]
     Dates: start: 20070627, end: 20070701

REACTIONS (2)
  - CHOLESTASIS [None]
  - CYTOLYTIC HEPATITIS [None]
